FAERS Safety Report 16026509 (Version 1)
Quarter: 2019Q1

REPORT INFORMATION
  Report Type: Spontaneous
  Country: US (occurrence: US)
  Receive Date: 20190302
  Receipt Date: 20190302
  Transmission Date: 20190418
  Serious: No
  Sender: FDA-Public Use
  Company Number: US-TARO-2018TAR00165

PATIENT
  Sex: Female

DRUGS (1)
  1. TERCONAZOLE VAGINAL CREAM 0.4% [Suspect]
     Active Substance: TERCONAZOLE
     Indication: VULVOVAGINAL MYCOTIC INFECTION
     Dosage: 1 DOSAGE UNITS, UNK
     Route: 067
     Dates: start: 20180223, end: 20180223

REACTIONS (2)
  - Product quality issue [Recovered/Resolved]
  - Vulvovaginal pain [Not Recovered/Not Resolved]

NARRATIVE: CASE EVENT DATE: 20180223
